FAERS Safety Report 24286414 (Version 1)
Quarter: 2024Q3

REPORT INFORMATION
  Report Type: Spontaneous
  Country: CA (occurrence: CA)
  Receive Date: 20240905
  Receipt Date: 20240905
  Transmission Date: 20241016
  Serious: Yes (Hospitalization)
  Sender: FRESENIUS KABI
  Company Number: CA-FreseniusKabi-FK202413164

PATIENT
  Age: 35 Year
  Sex: Male
  Weight: 96 kg

DRUGS (11)
  1. BLEOMYCIN SULFATE [Suspect]
     Active Substance: BLEOMYCIN SULFATE
     Indication: Testis cancer
     Dosage: FORM OF ADMIN-INJECTION
  2. ETOPOSIDE [Suspect]
     Active Substance: ETOPOSIDE
     Indication: Testis cancer
     Dosage: FORM OF ADMIN-NOT SPECIFIED
  3. CISPLATIN [Suspect]
     Active Substance: CISPLATIN
     Indication: Testis cancer
     Dosage: FOA-SOLUTION INTRAVENOUS
     Route: 042
  4. ACETAMINOPHEN [Concomitant]
     Active Substance: ACETAMINOPHEN
     Indication: Product used for unknown indication
     Dosage: FOA-NOT SPECIFIED
  5. DEXAMETHASONE [Concomitant]
     Active Substance: DEXAMETHASONE
     Indication: Product used for unknown indication
     Dosage: FOA-NOT SPECIFIED
     Route: 065
  6. EMEND [Concomitant]
     Active Substance: APREPITANT
     Indication: Product used for unknown indication
     Dosage: FOA-CAPSULES
  7. FUROSEMIDE [Concomitant]
     Active Substance: FUROSEMIDE
     Indication: Product used for unknown indication
     Dosage: FOA-NOT SPECIFIED
     Route: 065
  8. OLANZAPINE [Concomitant]
     Active Substance: OLANZAPINE
     Indication: Product used for unknown indication
     Dosage: FOA-NOT SPECIFIED
  9. PANTOPRAZOLE [Concomitant]
     Active Substance: PANTOPRAZOLE
     Indication: Product used for unknown indication
     Dosage: FOA-NOT SPECIFIED
  10. POLYETHYLENE GLYCOL [Concomitant]
     Active Substance: POLYETHYLENE GLYCOL
     Indication: Product used for unknown indication
     Dosage: FOA-NOT SPECIFIED
  11. PROCHLORPERAZINE [Concomitant]
     Active Substance: PROCHLORPERAZINE
     Indication: Product used for unknown indication
     Dosage: FOA-NOT SPECIFIED

REACTIONS (2)
  - Febrile neutropenia [Recovered/Resolved]
  - Pharyngitis streptococcal [Recovered/Resolved]
